FAERS Safety Report 10011856 (Version 1)
Quarter: 2014Q1

REPORT INFORMATION
  Report Type: Report from Study
  Country: US (occurrence: US)
  Receive Date: 20140314
  Receipt Date: 20140314
  Transmission Date: 20141002
  Serious: No
  Sender: FDA-Public Use
  Company Number: PHEH2014US005108

PATIENT
  Age: 79 Year
  Sex: Female
  Weight: 54.88 kg

DRUGS (8)
  1. TASIGNA [Suspect]
     Indication: CHRONIC MYELOID LEUKAEMIA
     Dosage: 150 MG, BID
     Route: 048
     Dates: start: 20111214
  2. PREMARIN [Concomitant]
     Dosage: UNK UKN, UNK
  3. PREDNISONE [Concomitant]
     Dosage: UNK UKN, UNK
  4. ZOFRAN [Concomitant]
     Dosage: UNK UKN, UNK
  5. ZOLPIDEM [Concomitant]
     Dosage: UNK UKN, UNK
  6. CALCIUM [Concomitant]
     Dosage: UNK UKN, UNK
  7. VITAMIN D [Concomitant]
     Dosage: UNK UKN, UNK
  8. DEXEDRINE [Concomitant]
     Dosage: UNK UKN, UNK

REACTIONS (2)
  - Tendonitis [Unknown]
  - Abdominal discomfort [Unknown]
